FAERS Safety Report 25899857 (Version 1)
Quarter: 2025Q4

REPORT INFORMATION
  Report Type: Spontaneous
  Country: US (occurrence: US)
  Receive Date: 20251009
  Receipt Date: 20251009
  Transmission Date: 20260118
  Serious: Yes (Hospitalization)
  Sender: ACCORD
  Company Number: US-MLMSERVICE-20250919-PI650506-00082-1

PATIENT
  Age: 33 Year
  Sex: Female

DRUGS (14)
  1. CARBOPLATIN [Suspect]
     Active Substance: CARBOPLATIN
     Indication: Invasive ductal breast carcinoma
     Dosage: INDUCTION CHEMOTHERAPY REGIMEN
     Route: 042
     Dates: start: 20220209
  2. DOCETAXEL [Suspect]
     Active Substance: DOCETAXEL
     Indication: Invasive ductal breast carcinoma
     Dosage: INDUCTION CHEMOTHERAPY REGIMEN
     Route: 042
     Dates: start: 20220209
  3. TRASTUZUMAB [Suspect]
     Active Substance: TRASTUZUMAB
     Indication: Invasive ductal breast carcinoma
     Dosage: INDUCTION CHEMOTHERAPY REGIMEN
     Route: 042
     Dates: start: 20220209
  4. PERTUZUMAB [Suspect]
     Active Substance: PERTUZUMAB
     Indication: Invasive ductal breast carcinoma
     Dosage: INDUCTION CHEMOTHERAPY REGIMEN
     Route: 042
     Dates: start: 20220209
  5. DOCETAXEL [Suspect]
     Active Substance: DOCETAXEL
     Indication: HER2 positive breast cancer
     Dosage: EVERY 21 DAYS
     Route: 042
     Dates: start: 20220302, end: 20220526
  6. DOCETAXEL [Suspect]
     Active Substance: DOCETAXEL
     Indication: Hormone receptor positive breast cancer
     Dosage: INDUCTION CHEMOTHERAPY REGIMEN
     Route: 042
     Dates: start: 20220209
  7. TRASTUZUMAB [Suspect]
     Active Substance: TRASTUZUMAB
     Indication: HER2 positive breast cancer
     Dosage: EVERY 21 DAYS
     Route: 042
     Dates: start: 20220302, end: 20220526
  8. TRASTUZUMAB [Suspect]
     Active Substance: TRASTUZUMAB
     Indication: Invasive ductal breast carcinoma
     Route: 042
     Dates: start: 20220718, end: 20230213
  9. TRASTUZUMAB [Suspect]
     Active Substance: TRASTUZUMAB
     Indication: Hormone receptor positive breast cancer
     Dosage: INDUCTION CHEMOTHERAPY REGIMEN
     Route: 042
     Dates: start: 20220209
  10. PERTUZUMAB [Suspect]
     Active Substance: PERTUZUMAB
     Indication: HER2 positive breast cancer
     Dosage: EVERY 21 DAYS
     Route: 042
     Dates: start: 20220302, end: 20220526
  11. PERTUZUMAB [Suspect]
     Active Substance: PERTUZUMAB
     Indication: Hormone receptor positive breast cancer
     Dosage: INDUCTION CHEMOTHERAPY REGIMEN
     Route: 042
     Dates: start: 20220209
  12. CARBOPLATIN [Suspect]
     Active Substance: CARBOPLATIN
     Indication: Invasive ductal breast carcinoma
     Dosage: INDUCTION CHEMOTHERAPY REGIMEN
     Route: 042
     Dates: start: 20220209
  13. CARBOPLATIN [Suspect]
     Active Substance: CARBOPLATIN
     Indication: HER2 positive breast cancer
     Dosage: EVERY 21 DAYS
     Route: 042
     Dates: start: 20220302, end: 20220526
  14. CARBOPLATIN [Suspect]
     Active Substance: CARBOPLATIN
     Indication: Hormone receptor positive breast cancer
     Dosage: INDUCTION CHEMOTHERAPY REGIMEN
     Route: 042
     Dates: start: 20220209

REACTIONS (3)
  - Coronary artery stenosis [Recovered/Resolved]
  - Arteriosclerosis [Recovered/Resolved]
  - Off label use [Unknown]

NARRATIVE: CASE EVENT DATE: 20241201
